FAERS Safety Report 9699298 (Version 2)
Quarter: 2015Q3

REPORT INFORMATION
  Report Type: Spontaneous
  Country: US (occurrence: US)
  Receive Date: 20131120
  Receipt Date: 20150803
  Transmission Date: 20151125
  Serious: No
  Sender: FDA-Public Use
  Company Number: US-GILEAD-2008-0015484

PATIENT
  Sex: Female
  Weight: 113.4 kg

DRUGS (17)
  1. CLONIDINE. [Concomitant]
     Active Substance: CLONIDINE
     Dosage: AS DIRECTED
     Route: 061
  2. LIDOCAINE. [Concomitant]
     Active Substance: LIDOCAINE
     Dosage: AS DIRECTED
     Route: 061
  3. REMODULIN [Concomitant]
     Active Substance: TREPROSTINIL
     Dosage: CONTINUOUS
     Route: 058
  4. AMITRIPTYLINE [Concomitant]
     Active Substance: AMITRIPTYLINE
     Dosage: AS DIRECTED
     Route: 061
  5. POLOXAMER [Concomitant]
     Active Substance: POLOXAMER
     Dosage: AS DIRECTED
     Route: 061
  6. HUMULIN N [Concomitant]
     Active Substance: INSULIN HUMAN
     Dosage: AS DIRECTED
     Route: 058
  7. LETAIRIS [Suspect]
     Active Substance: AMBRISENTAN
     Indication: PULMONARY ARTERIAL HYPERTENSION
     Route: 048
     Dates: start: 20080107, end: 20080208
  8. GABAPENTIN. [Concomitant]
     Active Substance: GABAPENTIN
     Dosage: AS DIRECTED
     Route: 061
  9. KETAMINE [Concomitant]
     Active Substance: KETAMINE
     Dosage: AS DIRECTED
     Route: 061
  10. LECITHIN [Concomitant]
     Active Substance: LECITHIN
     Dosage: AS DIRECTED
     Route: 061
  11. PLAVIX [Concomitant]
     Active Substance: CLOPIDOGREL BISULFATE
     Route: 048
  12. LEVOXYL [Concomitant]
     Active Substance: LEVOTHYROXINE SODIUM
     Route: 048
  13. LIPITOR [Concomitant]
     Active Substance: ATORVASTATIN CALCIUM
     Route: 048
  14. ALTACE [Concomitant]
     Active Substance: RAMIPRIL
     Route: 048
  15. KETOPROFEN. [Concomitant]
     Active Substance: KETOPROFEN
     Dosage: AS DIRECTED
     Route: 061
  16. LASIX [Concomitant]
     Active Substance: FUROSEMIDE
     Route: 048
  17. ECOTRIN [Concomitant]
     Active Substance: ASPIRIN
     Route: 048

REACTIONS (4)
  - Palpitations [Unknown]
  - Sinus disorder [Unknown]
  - Dyspnoea [Unknown]
  - Headache [Unknown]
